FAERS Safety Report 10163637 (Version 1)
Quarter: 2014Q2

REPORT INFORMATION
  Report Type: Spontaneous
  Country: DK (occurrence: GB)
  Receive Date: 20140509
  Receipt Date: 20140509
  Transmission Date: 20141212
  Serious: Yes (Other)
  Sender: FDA-Public Use
  Company Number: GB-FRI-1000067175

PATIENT
  Sex: Female

DRUGS (4)
  1. CITALOPRAM [Suspect]
     Indication: DEPRESSION
     Route: 048
  2. AMITRIPTYLINE [Concomitant]
  3. FUROSEMIDE [Concomitant]
  4. OMEPRAZOLE [Concomitant]

REACTIONS (2)
  - Inflammation [Recovered/Resolved]
  - Pain in extremity [Recovered/Resolved]
